FAERS Safety Report 5818924-7 (Version None)
Quarter: 2008Q3

REPORT INFORMATION
  Report Type: 
  Country: None (occurrence: None)
  Receive Date: 20080721
  Receipt Date: 20080721
  Transmission Date: 20090109
  Serious: Yes (Hospitalization)
  Sender: FDA-Public Use
  Company Number: None

PATIENT
  Sex: Male
  Weight: 83.9 kg

DRUGS (18)
  1. FLUOROURACIL [Suspect]
     Dosage: 8080 MG
  2. CISPLATIN [Suspect]
     Dosage: 148 MG
  3. CETUXIMAB [Suspect]
     Dosage: 1445 MG
  4. ACLOVATE [Concomitant]
  5. ATIVAN [Concomitant]
  6. CIPRO [Concomitant]
  7. CLINDAMYCIN [Concomitant]
  8. COOMPAZINE [Concomitant]
  9. DILAUDID [Concomitant]
  10. DOXYCYCLIN [Concomitant]
  11. FLAGYL [Concomitant]
  12. HYDROCORTISONE TOPICAL [Concomitant]
  13. LAMICTAL [Concomitant]
  14. OXYCONTIN [Concomitant]
  15. SENOKOT [Concomitant]
  16. TRAZODONE HCL [Concomitant]
  17. WELLBUTRIN [Concomitant]
  18. ZOFRAN [Concomitant]

REACTIONS (11)
  - COLITIS [None]
  - CONSTIPATION [None]
  - DIARRHOEA [None]
  - DIZZINESS [None]
  - FALL [None]
  - HEADACHE [None]
  - HYPOPHAGIA [None]
  - ILEITIS [None]
  - NAUSEA [None]
  - PROCTALGIA [None]
  - WHITE BLOOD CELL COUNT DECREASED [None]
